FAERS Safety Report 9230530 (Version 1)
Quarter: 2013Q2

REPORT INFORMATION
  Report Type: Spontaneous
  Country: GB (occurrence: None)
  Receive Date: 20130411
  Receipt Date: 20130411
  Transmission Date: 20140414
  Serious: Yes (Life-Threatening, Hospitalization, Disabling)
  Sender: FDA-Public Use
  Company Number: GER/UKI/13/0028961

PATIENT
  Age: 85 Year
  Sex: Female

DRUGS (9)
  1. CLOPIDOGREL [Suspect]
     Indication: CEREBROVASCULAR ACCIDENT
     Route: 048
     Dates: start: 20130321, end: 20130324
  2. ASPIRIN (ACETYLSALICYLIC ACID) [Suspect]
     Indication: PROPHYLAXIS
     Route: 048
     Dates: end: 20130324
  3. CLEXANE [Suspect]
     Indication: PROPHYLAXIS
     Route: 058
     Dates: start: 20130316, end: 20130317
  4. PRADAXA [Suspect]
     Indication: PROPHYLAXIS
     Route: 048
     Dates: start: 20130316, end: 20130317
  5. ANAESTHETICS NOS (ANAESTHETICS) [Concomitant]
  6. GABAPENTIN (GABAPENTIN) [Concomitant]
  7. PARACETAMOL (PARACETAMOL) [Concomitant]
  8. RAMIPRIL (RAMIPRIL) [Concomitant]
  9. SIMVASTATIN (SIMVASTATIN) [Concomitant]

REACTIONS (1)
  - Rectal haemorrhage [None]
